FAERS Safety Report 20524068 (Version 1)
Quarter: 2022Q1

REPORT INFORMATION
  Report Type: Spontaneous
  Country: US (occurrence: US)
  Receive Date: 20220228
  Receipt Date: 20220228
  Transmission Date: 20220423
  Serious: Yes (Other)
  Sender: FDA-Public Use
  Company Number: US-drreddys-SPO/USA/22/0147120

PATIENT
  Age: 31 Year
  Sex: Female

DRUGS (2)
  1. ACCUTANE [Suspect]
     Active Substance: ISOTRETINOIN
     Indication: Product used for unknown indication
     Dosage: RMA ISSUE DATE: 20 SEPTEMBER 2021 12:00:00 AM
  2. ACCUTANE [Suspect]
     Active Substance: ISOTRETINOIN
     Dosage: RMA ISSUE DATE:18 OCTOBER 2021 12:00:00 AM, 23 NOVEMBER 2021 12:00:00 AM, 27 DECEMBER 2021 04:02:05

REACTIONS (2)
  - Depression [Unknown]
  - Fatigue [Unknown]
